FAERS Safety Report 9526603 (Version 3)
Quarter: 2014Q2

REPORT INFORMATION
  Report Type: Spontaneous
  Country: CA (occurrence: CA)
  Receive Date: 20130916
  Receipt Date: 20140423
  Transmission Date: 20141212
  Serious: Yes (Hospitalization, Other)
  Sender: FDA-Public Use
  Company Number: PHHY2013CA100153

PATIENT
  Age: 60 Year
  Sex: Female
  Weight: 77.98 kg

DRUGS (2)
  1. BISOPROLOL SANDOZ [Suspect]
     Indication: ELECTROCARDIOGRAM QT PROLONGED
     Dosage: 2.5 MG, QD (HALF TABLET OF 5MG)
     Route: 048
     Dates: start: 201305, end: 201310
  2. COPAXONE [Concomitant]
     Dosage: UNK, QD
     Route: 058

REACTIONS (5)
  - Diplegia [Recovered/Resolved]
  - Monoplegia [Recovered/Resolved]
  - Hepatic pain [Recovering/Resolving]
  - Hepatic enzyme increased [Recovering/Resolving]
  - Syncope [Recovered/Resolved]
